FAERS Safety Report 10052925 (Version 2)
Quarter: 2014Q2

REPORT INFORMATION
  Report Type: Report from Study
  Country: GB (occurrence: GB)
  Receive Date: 20140402
  Receipt Date: 20140528
  Transmission Date: 20141212
  Serious: Yes (Hospitalization)
  Sender: FDA-Public Use
  Company Number: GB-BRISTOL-MYERS SQUIBB COMPANY-20576237

PATIENT
  Age: 49 Year
  Sex: Female

DRUGS (1)
  1. IPILIMUMAB [Suspect]
     Indication: METASTATIC MALIGNANT MELANOMA
     Dosage: ON 06FEB14, 26FEB2014, 19MAR2014
     Route: 042
     Dates: start: 20140206, end: 20140319

REACTIONS (5)
  - Vomiting [Unknown]
  - Diarrhoea [Unknown]
  - Haematemesis [Unknown]
  - Visual impairment [Unknown]
  - Headache [Unknown]
